FAERS Safety Report 25920690 (Version 1)
Quarter: 2025Q4

REPORT INFORMATION
  Report Type: Report from Study
  Country: US (occurrence: US)
  Receive Date: 20251014
  Receipt Date: 20251014
  Transmission Date: 20260118
  Serious: Yes (Other)
  Sender: ABBVIE
  Company Number: US-ABBVIE-6501395

PATIENT
  Age: 54 Year
  Sex: Female

DRUGS (1)
  1. CREON [Suspect]
     Active Substance: PANCRELIPASE AMYLASE\PANCRELIPASE LIPASE\PANCRELIPASE PROTEASE
     Indication: Pancreatic failure
     Route: 048
     Dates: start: 20181015

REACTIONS (12)
  - Hand fracture [Not Recovered/Not Resolved]
  - Prescription drug used without a prescription [Unknown]
  - Osteoporosis [Unknown]
  - Foot fracture [Recovered/Resolved]
  - Sinus tachycardia [Not Recovered/Not Resolved]
  - COVID-19 [Recovered/Resolved]
  - Systemic lupus erythematosus [Not Recovered/Not Resolved]
  - Hypophagia [Unknown]
  - Malabsorption [Unknown]
  - Raynaud^s phenomenon [Not Recovered/Not Resolved]
  - Dehydration [Unknown]
  - Ventricular tachycardia [Not Recovered/Not Resolved]

NARRATIVE: CASE EVENT DATE: 20200620
